FAERS Safety Report 9192824 (Version 4)
Quarter: 2013Q2

REPORT INFORMATION
  Report Type: Spontaneous
  Country: JP (occurrence: JP)
  Receive Date: 20130327
  Receipt Date: 20130506
  Transmission Date: 20140414
  Serious: Yes (Life-Threatening)
  Sender: FDA-Public Use
  Company Number: JP-GE HEALTHCARE MEDICAL DIAGNOSTICS-OMPQ-NO-1303L-0370

PATIENT
  Age: 62 Year
  Sex: Male

DRUGS (5)
  1. OMNIPAQUE [Suspect]
     Indication: PANCREATIC NEUROENDOCRINE TUMOUR
     Route: 042
     Dates: start: 20110907, end: 20110907
  2. OMNIPAQUE [Suspect]
     Indication: DIAGNOSTIC PROCEDURE
  3. ALOXI [Concomitant]
  4. DECADRON [Concomitant]
  5. GEMZAR [Concomitant]
     Route: 065
     Dates: start: 20110825

REACTIONS (1)
  - Anaphylactoid shock [Recovered/Resolved]
